FAERS Safety Report 10789627 (Version 1)
Quarter: 2015Q1

REPORT INFORMATION
  Report Type: Spontaneous
  Country: CN (occurrence: CN)
  Receive Date: 20150212
  Receipt Date: 20150212
  Transmission Date: 20150721
  Serious: Yes (Death, Other)
  Sender: FDA-Public Use
  Company Number: CN-BAYER-2015-015905

PATIENT
  Age: 77 Year
  Sex: Male

DRUGS (1)
  1. CIPROFLOXACIN BETAIN [Suspect]
     Active Substance: CIPROFLOXACIN
     Dosage: 200 MG, BID
     Route: 042

REACTIONS (8)
  - Asthma [None]
  - Death [Fatal]
  - Cyanosis [None]
  - Unresponsive to stimuli [None]
  - Flushing [None]
  - Seizure [None]
  - Wheezing [None]
  - Drug hypersensitivity [None]
